FAERS Safety Report 8939914 (Version 1)
Quarter: 2012Q4

REPORT INFORMATION
  Report Type: 
  Country: AU (occurrence: AU)
  Receive Date: 20121203
  Receipt Date: 20121203
  Transmission Date: 20130627
  Serious: Yes (Life-Threatening, Hospitalization)
  Sender: FDA-Public Use
  Company Number: AU-009507513-1211AUS012665

PATIENT
  Age: 46 Year
  Sex: Female
  Weight: 90.3 kg

DRUGS (5)
  1. TEMODAL [Suspect]
     Indication: GLIOBLASTOMA
     Dosage: UNK, q3w
     Route: 048
     Dates: start: 20101006
  2. DEXAMETHASONE [Concomitant]
     Dosage: 4 mg, UNK
     Dates: start: 20090721
  3. DEXAMETHASONE [Concomitant]
     Dosage: 8 mg, UNK
     Dates: start: 20100614
  4. DEXAMETHASONE [Concomitant]
     Dosage: 12 mg, UNK
     Dates: start: 20101020, end: 20101216
  5. DEXAMETHASONE [Concomitant]
     Dosage: 16 UNK, UNK
     Dates: start: 20101217

REACTIONS (1)
  - Pulmonary embolism [Not Recovered/Not Resolved]
